FAERS Safety Report 6405423-7 (Version None)
Quarter: 2009Q4

REPORT INFORMATION
  Report Type: 
  Country: None (occurrence: None)
  Receive Date: 20091019
  Receipt Date: 20091008
  Transmission Date: 20100525
  Serious: Yes (Other)
  Sender: FDA-Public Use
  Company Number: US-BAYER-200813586NA

PATIENT
  Age: 41 Year
  Sex: Female
  Weight: 68 kg

DRUGS (1)
  1. MIRENA [Suspect]
     Indication: CONTRACEPTION
     Dosage: 20 UG/DAY, CONTINUOUS
     Route: 015
     Dates: start: 20050401

REACTIONS (7)
  - AMENORRHOEA [None]
  - BREAST CANCER FEMALE [None]
  - BREAST PAIN [None]
  - BREAST TENDERNESS [None]
  - COMPLICATION OF DEVICE INSERTION [None]
  - DYSMENORRHOEA [None]
  - VAGINAL HAEMORRHAGE [None]
